FAERS Safety Report 26133869 (Version 2)
Quarter: 2025Q4

REPORT INFORMATION
  Report Type: Report from Study
  Country: EU (occurrence: EU)
  Receive Date: 20251209
  Receipt Date: 20251210
  Transmission Date: 20260119
  Serious: Yes (Hospitalization)
  Sender: ABBVIE
  Company Number: EU-ABBVIE-6580534

PATIENT
  Age: 74 Year
  Sex: Female

DRUGS (2)
  1. FOSCARBIDOPA\FOSLEVODOPA [Suspect]
     Active Substance: FOSCARBIDOPA\FOSLEVODOPA
     Indication: Parkinson^s disease
     Dosage: CRN: 0.25ML/H, CR: 0.40ML/H, CRH: 0.42ML/H, ED: 0.30ML
     Route: 058
     Dates: start: 20240620
  2. FOSCARBIDOPA\FOSLEVODOPA [Suspect]
     Active Substance: FOSCARBIDOPA\FOSLEVODOPA
     Dosage: CRN: 0.22ML/H, CR: 0.41ML/H, CRH: 0.42ML ED: 0.30ML
     Route: 058

REACTIONS (3)
  - Pain [Not Recovered/Not Resolved]
  - Spinal operation [Unknown]
  - Gait disturbance [Recovering/Resolving]

NARRATIVE: CASE EVENT DATE: 20250101
